FAERS Safety Report 8037915-1 (Version None)
Quarter: 2012Q1

REPORT INFORMATION
  Report Type: 
  Country: None (occurrence: None)
  Receive Date: 20120111
  Receipt Date: 20120106
  Transmission Date: 20120608
  Serious: Yes (Other)
  Sender: FDA-Public Use
  Company Number: CHPA2012JP000768

PATIENT
  Sex: Female

DRUGS (1)
  1. PURSENNID [Suspect]
     Dosage: UNK, UNK
     Route: 048

REACTIONS (4)
  - DEMENTIA [None]
  - DYSPHAGIA [None]
  - WRONG TECHNIQUE IN DRUG USAGE PROCESS [None]
  - THERAPEUTIC RESPONSE DECREASED [None]
